FAERS Safety Report 23214406 (Version 2)
Quarter: 2024Q2

REPORT INFORMATION
  Report Type: Report from Study
  Country: US (occurrence: US)
  Receive Date: 20231121
  Receipt Date: 20240413
  Transmission Date: 20240716
  Serious: Yes (Hospitalization)
  Sender: FDA-Public Use
  Company Number: US-ALXN-202311USA001062US

PATIENT

DRUGS (1)
  1. ULTOMIRIS [Suspect]
     Active Substance: RAVULIZUMAB-CWVZ
     Indication: Paroxysmal nocturnal haemoglobinuria
     Dosage: UNK
     Route: 065

REACTIONS (10)
  - Abdominal pain [Unknown]
  - Thalassaemia [Unknown]
  - Haemochromatosis [Unknown]
  - Blood bilirubin increased [Unknown]
  - Immune system disorder [Unknown]
  - Eating disorder [Unknown]
  - Weight decreased [Unknown]
  - Illness [Unknown]
  - Memory impairment [Unknown]
  - Infusion related reaction [Unknown]
